FAERS Safety Report 4357146-6 (Version None)
Quarter: 2004Q2

REPORT INFORMATION
  Report Type: 
  Country: None (occurrence: None)
  Receive Date: 20040511
  Receipt Date: 20040501
  Transmission Date: 20050107
  Serious: Yes (Hospitalization)
  Sender: FDA-Public Use
  Company Number: US-SHR-04-020134

PATIENT
  Age: 41 Year
  Sex: Male

DRUGS (9)
  1. BETASERON [Suspect]
     Indication: MULTIPLE SCLEROSIS
     Dosage: 8 MIU, EVERY 2D, SUBCUTANEOUS
     Route: 058
     Dates: start: 20010716, end: 20040101
  2. BETASERON [Suspect]
     Indication: MULTIPLE SCLEROSIS
     Dosage: 8 MIU, EVERY 2D, SUBCUTANEOUS
     Route: 058
     Dates: start: 20040101
  3. SYNTHROID [Concomitant]
  4. BACLOFEN [Concomitant]
  5. PRAVACHOL [Concomitant]
  6. ZANAFLEX [Concomitant]
  7. PROCARDIA [Concomitant]
  8. TOPROL-XL [Concomitant]
  9. ANTIHYPERTENSIVES [Concomitant]

REACTIONS (2)
  - HAEMODIALYSIS [None]
  - RENAL FAILURE [None]
